FAERS Safety Report 9911592 (Version 2)
Quarter: 2014Q1

REPORT INFORMATION
  Report Type: Report from Study
  Country: US (occurrence: US)
  Receive Date: 20140219
  Receipt Date: 20140219
  Transmission Date: 20141002
  Serious: Yes (Other)
  Sender: FDA-Public Use
  Company Number: PHEH2013US026602

PATIENT
  Age: 58 Year
  Sex: Female

DRUGS (11)
  1. TASIGNA [Suspect]
     Indication: CHRONIC MYELOID LEUKAEMIA
     Dosage: 150 MG, BID
     Route: 048
     Dates: start: 20130401
  2. TASIGNA [Suspect]
     Dosage: 300 MG, BID
     Route: 048
     Dates: start: 20130411
  3. PANCREATIN [Concomitant]
     Dosage: 500 MG, DAILY
  4. VIT B12 [Concomitant]
  5. VITAMIN A [Concomitant]
     Dosage: 8000 IU, DAILY
  6. MULTI-VIT [Concomitant]
  7. PSYLLIUM HUSK [Concomitant]
  8. FLAXSEED OIL [Concomitant]
  9. LINACLOTIDE [Concomitant]
  10. OMEPRAZOLE [Concomitant]
  11. HYDROXYUREA [Concomitant]
     Dosage: 500 MG, BID
     Route: 048

REACTIONS (15)
  - Cystitis [Unknown]
  - Upper respiratory tract infection [Unknown]
  - Electrocardiogram QT prolonged [Unknown]
  - Burning sensation [Unknown]
  - Bladder discomfort [Unknown]
  - Heart rate increased [Not Recovered/Not Resolved]
  - Palpitations [Recovered/Resolved]
  - Dizziness [Recovered/Resolved]
  - Anaemia [Unknown]
  - Dysphonia [Unknown]
  - Alopecia [Unknown]
  - Erythema [Unknown]
  - Epistaxis [Recovered/Resolved]
  - Dysuria [Recovering/Resolving]
  - Alanine aminotransferase increased [Unknown]
